FAERS Safety Report 5987375-7 (Version None)
Quarter: 2008Q4

REPORT INFORMATION
  Report Type: 
  Country: None (occurrence: None)
  Receive Date: 20081209
  Receipt Date: 20081203
  Transmission Date: 20090506
  Serious: Yes (Hospitalization)
  Sender: FDA-Public Use
  Company Number: PHHY2008BE26973

PATIENT
  Sex: Male

DRUGS (4)
  1. COMTAN [Suspect]
     Indication: PARKINSON'S DISEASE
     Dosage: 200 MG, TID
     Route: 048
     Dates: start: 20081001, end: 20081101
  2. PROLOPA [Concomitant]
  3. REQUIP [Concomitant]
  4. CARDIO ASPIRINA [Concomitant]

REACTIONS (6)
  - CATHETER RELATED INFECTION [None]
  - DEHYDRATION [None]
  - DIARRHOEA [None]
  - PSEUDOMONAS INFECTION [None]
  - PYREXIA [None]
  - SEPSIS [None]
